FAERS Safety Report 5232843-9 (Version None)
Quarter: 2007Q1

REPORT INFORMATION
  Report Type: 
  Country: None (occurrence: None)
  Receive Date: 20070207
  Receipt Date: 20070201
  Transmission Date: 20070707
  Serious: Yes (Life-Threatening, Disabling)
  Sender: FDA-Public Use
  Company Number: 2007AP00361

PATIENT
  Age: 78 Year
  Sex: Male
  Weight: 65.7 kg

DRUGS (10)
  1. MEROPENEM [Suspect]
     Indication: PNEUMONIA
     Route: 041
     Dates: start: 20060907, end: 20060907
  2. BFLUID [Concomitant]
     Route: 041
     Dates: start: 20060906, end: 20060908
  3. SODIUM CHLORIDE [Concomitant]
     Route: 041
     Dates: start: 20060907, end: 20060907
  4. CEFAMEDIN [Concomitant]
     Indication: PNEUMONIA
     Route: 041
     Dates: start: 20060907, end: 20060907
  5. MEYLON [Concomitant]
     Indication: ACIDOSIS
     Route: 041
     Dates: start: 20060907, end: 20060907
  6. KN FLUID SUPPLEMENT 1A [Concomitant]
     Route: 041
     Dates: start: 20060908, end: 20060908
  7. PACETCOOL [Concomitant]
     Indication: PNEUMONIA
     Route: 041
     Dates: start: 20060908, end: 20060910
  8. VEEN-D [Concomitant]
     Route: 041
     Dates: start: 20060909, end: 20060910
  9. SOL-MELCORT [Concomitant]
     Route: 041
     Dates: start: 20060909, end: 20060910
  10. KN FLUID SUPPLEMENT 4A [Concomitant]
     Route: 041
     Dates: start: 20060909, end: 20060910

REACTIONS (4)
  - DEPRESSED LEVEL OF CONSCIOUSNESS [None]
  - HEPATITIS [None]
  - HYPERVENTILATION [None]
  - RENAL DISORDER [None]
